FAERS Safety Report 10549337 (Version 1)
Quarter: 2014Q4

REPORT INFORMATION
  Report Type: Spontaneous
  Country: US (occurrence: None)
  Receive Date: 20141016
  Receipt Date: 20141016
  Transmission Date: 20150529
  Serious: No
  Sender: FDA-Public Use
  Company Number: CABO-14004493

PATIENT
  Age: 50 Year
  Sex: Male

DRUGS (1)
  1. COMETRIQ [Suspect]
     Active Substance: CABOZANTINIB S-MALATE
     Indication: THYROID CANCER
     Route: 048
     Dates: start: 20140612, end: 20140708

REACTIONS (5)
  - Swelling face [None]
  - Hyperkeratosis [None]
  - Palmar-plantar erythrodysaesthesia syndrome [None]
  - Groin pain [None]
  - Skin irritation [None]
